FAERS Safety Report 6872615-2 (Version None)
Quarter: 2010Q3

REPORT INFORMATION
  Report Type: 
  Country: None (occurrence: None)
  Receive Date: 20100723
  Receipt Date: 20081017
  Transmission Date: 20110219
  Serious: No
  Sender: FDA-Public Use
  Company Number: US-PFIZER INC-2008090576

PATIENT
  Sex: Female
  Weight: 99.79 kg

DRUGS (3)
  1. CHANTIX [Suspect]
     Indication: SMOKING CESSATION THERAPY
     Route: 048
     Dates: start: 20081005
  2. CELEXA [Suspect]
  3. WELLBUTRIN [Suspect]

REACTIONS (2)
  - FATIGUE [None]
  - HYPERSOMNIA [None]
